FAERS Safety Report 23207649 (Version 1)
Quarter: 2023Q4

REPORT INFORMATION
  Report Type: Report from Study
  Country: US (occurrence: US)
  Receive Date: 20231120
  Receipt Date: 20231120
  Transmission Date: 20240110
  Serious: Yes (Other)
  Sender: FDA-Public Use
  Company Number: US-JAZZ PHARMACEUTICALS-2023-US-022534

PATIENT
  Sex: Female
  Weight: 74 kg

DRUGS (1)
  1. EPIDIOLEX [Suspect]
     Active Substance: CANNABIDIOL
     Indication: Epilepsy
     Dosage: 7 MILLILITER, BID (7 ML (700 MG TOTAL) IN THE MORNING AND 7 ML (700 MG TOTAL) IN THE EVENING)
     Route: 048

REACTIONS (3)
  - Seizure [Unknown]
  - Syncope [Unknown]
  - Product administration interrupted [Unknown]
